FAERS Safety Report 25346587 (Version 1)
Quarter: 2025Q2

REPORT INFORMATION
  Report Type: Spontaneous
  Country: US (occurrence: US)
  Receive Date: 20250522
  Receipt Date: 20250522
  Transmission Date: 20250716
  Serious: Yes (Other)
  Sender: AUROBINDO
  Company Number: US-AUROBINDO-AUR-APL-2025-024337

PATIENT
  Age: 62 Year
  Sex: Male

DRUGS (8)
  1. DECITABINE [Suspect]
     Active Substance: DECITABINE
     Indication: Leukaemia
     Route: 065
  2. DECITABINE [Suspect]
     Active Substance: DECITABINE
     Indication: Chloroma
  3. DAUNORUBICIN [Suspect]
     Active Substance: DAUNORUBICIN
     Indication: Leukaemia
     Route: 065
  4. DAUNORUBICIN [Suspect]
     Active Substance: DAUNORUBICIN
     Indication: Chloroma
  5. CYTARABINE [Suspect]
     Active Substance: CYTARABINE
     Indication: Leukaemia
     Route: 065
  6. CYTARABINE [Suspect]
     Active Substance: CYTARABINE
     Indication: Sarcoma
  7. VENETOCLAX [Suspect]
     Active Substance: VENETOCLAX
     Indication: Sarcoma
     Route: 065
  8. VENETOCLAX [Suspect]
     Active Substance: VENETOCLAX
     Indication: Leukaemia

REACTIONS (1)
  - Drug ineffective [Unknown]
